FAERS Safety Report 11576748 (Version 1)
Quarter: 2015Q3

REPORT INFORMATION
  Report Type: Spontaneous
  Country: RU (occurrence: RU)
  Receive Date: 20150930
  Receipt Date: 20150930
  Transmission Date: 20151125
  Serious: Yes (Other)
  Sender: FDA-Public Use
  Company Number: RU-BAYER-2015-428911

PATIENT
  Age: 33 Year
  Sex: Female

DRUGS (2)
  1. QLAIRA [Suspect]
     Active Substance: DIENOGEST\ESTRADIOL VALERATE
     Dosage: UNK
     Route: 048
  2. JEANINE [Suspect]
     Active Substance: ETHINYL ESTRADIOL
     Dosage: UNK
     Route: 048

REACTIONS (7)
  - Neck pain [None]
  - Headache [None]
  - Lymphadenitis [None]
  - Abdominal pain lower [None]
  - Vomiting [None]
  - Loss of consciousness [None]
  - Pelvic pain [None]
